FAERS Safety Report 4456868-6 (Version None)
Quarter: 2004Q3

REPORT INFORMATION
  Report Type: 
  Country: None (occurrence: None)
  Receive Date: 20040921
  Receipt Date: 20040909
  Transmission Date: 20050211
  Serious: Yes (Other)
  Sender: FDA-Public Use
  Company Number: K200401371

PATIENT
  Age: 81 Year
  Sex: Female

DRUGS (7)
  1. ALTACE [Suspect]
     Indication: HYPERTENSION
     Dosage: 2.5 MG, QD, ORAL
     Route: 048
     Dates: start: 19950105, end: 20040810
  2. LEVOTHYROXINE SODIUM [Concomitant]
  3. BENDROFLUAZIDE [Concomitant]
  4. FUROSEMIDE [Concomitant]
  5. CO-PROXAMOL (PARACETAMOL, DEXTROPROPXYPHENE HYDROCHLORIDE) [Concomitant]
  6. SALBUTAMOL (SALBUTAMOL) [Concomitant]
  7. WARFARIN (WARFARIN) [Concomitant]

REACTIONS (1)
  - RENAL FAILURE CHRONIC [None]
